FAERS Safety Report 18953058 (Version 1)
Quarter: 2021Q1

REPORT INFORMATION
  Report Type: Spontaneous
  Country: US (occurrence: US)
  Receive Date: 20210227
  Receipt Date: 20210227
  Transmission Date: 20210420
  Serious: Yes (Hospitalization, Disabling, Other)
  Sender: FDA-Public Use
  Company Number: None

PATIENT
  Age: 58 Year
  Sex: Male
  Weight: 108 kg

DRUGS (17)
  1. MEDTRONIC A2DR01 [Concomitant]
  2. APIXABAN [Concomitant]
     Active Substance: APIXABAN
  3. SILDENAFIL CITRATE. [Concomitant]
     Active Substance: SILDENAFIL CITRATE
  4. NITROGLYCERIN PRN [Concomitant]
  5. LOTRATADINE [Concomitant]
  6. METFORMIN HYDROCHLORIDE. [Suspect]
     Active Substance: METFORMIN HYDROCHLORIDE
     Indication: BLOOD GLUCOSE ABNORMAL
     Dosage: ?          QUANTITY:1 TABLET(S);?
     Route: 048
     Dates: start: 20120201, end: 20200801
  7. CARVEDILOL 80 MG [Concomitant]
  8. ROSUVASTATIN. [Concomitant]
     Active Substance: ROSUVASTATIN
  9. AMLODIPINE BESYLATE. [Concomitant]
     Active Substance: AMLODIPINE BESYLATE
  10. COLCHICINE. [Concomitant]
     Active Substance: COLCHICINE
  11. RAMIPRIL 10MG [Concomitant]
     Active Substance: RAMIPRIL
  12. ALLOPURINOL. [Concomitant]
     Active Substance: ALLOPURINOL
  13. CYCLOBENZAPRINE. [Concomitant]
     Active Substance: CYCLOBENZAPRINE
  14. TYLENOL [Concomitant]
     Active Substance: ACETAMINOPHEN
  15. METFORMIN HCI 750 MG [Concomitant]
  16. GABAPENTINE [Concomitant]
     Active Substance: GABAPENTIN
  17. MELATONIN [Concomitant]
     Active Substance: MELATONIN

REACTIONS (4)
  - Anaemia [None]
  - Haemorrhage [None]
  - Product substitution issue [None]
  - Blood urine present [None]

NARRATIVE: CASE EVENT DATE: 20180201
